FAERS Safety Report 20906118 (Version 1)
Quarter: 2022Q2

REPORT INFORMATION
  Report Type: Spontaneous
  Country: US (occurrence: US)
  Receive Date: 20220602
  Receipt Date: 20220602
  Transmission Date: 20220721
  Serious: No
  Sender: FDA-Public Use
  Company Number: US-COLLEGIUM PHARMACEUTICAL, INC.-2021CGM00731

PATIENT
  Sex: Female
  Weight: 77.098 kg

DRUGS (14)
  1. XTAMPZA ER [Suspect]
     Active Substance: OXYCODONE
     Indication: Spinal operation
     Dosage: 18 MG, 2X/DAY (EVERY 12 HOURS)
     Route: 048
     Dates: start: 2020, end: 20210613
  2. XTAMPZA ER [Suspect]
     Active Substance: OXYCODONE
     Indication: Rotator cuff syndrome
     Dosage: 18 MG, 2X/DAY (EVERY 12 HOURS)
     Route: 048
     Dates: start: 20210614, end: 20210615
  3. XTAMPZA ER [Suspect]
     Active Substance: OXYCODONE
     Indication: Intervertebral disc disorder
     Dosage: 18 MG, 2X/DAY (EVERY 12 HOURS)
     Route: 048
     Dates: start: 20210618
  4. XTAMPZA ER [Suspect]
     Active Substance: OXYCODONE
     Indication: Spinal operation
     Dosage: UNK
     Dates: end: 2020
  5. XTAMPZA ER [Suspect]
     Active Substance: OXYCODONE
     Indication: Rotator cuff syndrome
  6. XTAMPZA ER [Suspect]
     Active Substance: OXYCODONE
     Indication: Intervertebral disc disorder
  7. OXYCODONE [Concomitant]
     Active Substance: OXYCODONE
  8. LEVOTHYROXINE [Concomitant]
     Active Substance: LEVOTHYROXINE
  9. CYCLOBENZAPRINE [Concomitant]
     Active Substance: CYCLOBENZAPRINE
  10. HYDROCHLOROTHIAZIDE\LISINOPRIL [Concomitant]
     Active Substance: HYDROCHLOROTHIAZIDE\LISINOPRIL
  11. CYMBALTA [Concomitant]
     Active Substance: DULOXETINE HYDROCHLORIDE
  12. WELLBUTRIN [Concomitant]
     Active Substance: BUPROPION HYDROCHLORIDE
  13. AMITIZA [Concomitant]
     Active Substance: LUBIPROSTONE
  14. VITAMINS [Concomitant]
     Active Substance: VITAMINS

REACTIONS (2)
  - Therapeutic product effect decreased [Recovering/Resolving]
  - Product physical issue [Recovered/Resolved]

NARRATIVE: CASE EVENT DATE: 20200101
